FAERS Safety Report 13345423 (Version 2)
Quarter: 2017Q1

REPORT INFORMATION
  Report Type: Spontaneous
  Country: RS (occurrence: RS)
  Receive Date: 20170317
  Receipt Date: 20170327
  Transmission Date: 20170428
  Serious: Yes (Hospitalization, Other)
  Sender: FDA-Public Use
  Company Number: RS-AMGEN-SRBSP2017039731

PATIENT
  Sex: Female

DRUGS (33)
  1. CYCLOSPORIN A [Concomitant]
     Active Substance: CYCLOSPORINE
     Dosage: UNK
  2. PRONISON [Concomitant]
     Active Substance: PREDNISONE
     Dosage: 20 MG, UNK
     Dates: start: 20130802
  3. METHOTREXATE SODIUM. [Concomitant]
     Active Substance: METHOTREXATE SODIUM
     Dosage: 20 MG, WEEKLY
     Dates: start: 201405
  4. HEFEROL [Concomitant]
     Active Substance: FERROUS FUMARATE
     Dosage: UNK, 2X/DAY
     Dates: start: 20140403
  5. CYCLOSPORIN A [Concomitant]
     Active Substance: CYCLOSPORINE
     Indication: PSORIATIC ARTHROPATHY
     Dosage: 5 MG/KG, UNK
     Dates: start: 201410, end: 20150204
  6. NEOTIGASON [Suspect]
     Active Substance: ACITRETIN
     Dosage: 30 MG, DAILY
     Route: 065
     Dates: start: 201306, end: 201310
  7. NEOTIGASON [Suspect]
     Active Substance: ACITRETIN
     Dosage: 30 MG, DAILY
     Route: 065
     Dates: start: 20140403
  8. PRONISON [Concomitant]
     Active Substance: PREDNISONE
     Dosage: 20 MG, DAILY
     Dates: start: 20140715
  9. LEXAURIN [Concomitant]
     Active Substance: BROMAZEPAM
     Dosage: 1.5 MG, 1+1+2
  10. ALPHA D3 [Concomitant]
     Dosage: UNK
     Dates: start: 201509
  11. SULFASALAZINE. [Concomitant]
     Active Substance: SULFASALAZINE
     Indication: PSORIATIC ARTHROPATHY
     Dosage: 2 G, DAILY
     Dates: start: 2005
  12. PRONISON [Concomitant]
     Active Substance: PREDNISONE
     Dosage: 40 MG, ON 2ND  DAY
     Dates: start: 20140403
  13. METHOTREXATE SODIUM. [Concomitant]
     Active Substance: METHOTREXATE SODIUM
     Indication: PSORIATIC ARTHROPATHY
     Dosage: 10 MG, WEEKLY
     Dates: start: 200811, end: 201304
  14. METHOTREXATE SODIUM. [Concomitant]
     Active Substance: METHOTREXATE SODIUM
     Dosage: 10 MG, WEEKLY
     Dates: start: 201311
  15. METHOTREXATE SODIUM. [Concomitant]
     Active Substance: METHOTREXATE SODIUM
     Dosage: 17.5 MG, WEEKLY
     Dates: start: 20140731
  16. HEFEROL [Concomitant]
     Active Substance: FERROUS FUMARATE
     Dosage: UNK
     Dates: start: 201310
  17. NEOTIGASON [Suspect]
     Active Substance: ACITRETIN
     Indication: PSORIATIC ARTHROPATHY
     Dosage: 40 MG, DAILY
     Route: 065
     Dates: start: 201304, end: 201306
  18. PRONISON [Concomitant]
     Active Substance: PREDNISONE
     Dosage: 30 MG, DAILY
     Dates: start: 201509
  19. PRONISON [Concomitant]
     Active Substance: PREDNISONE
     Dosage: 20 UNK, UNK
  20. FERRUM [Concomitant]
     Active Substance: FERROUS FUMARATE
     Dosage: UNK
     Dates: start: 201304, end: 2013
  21. METHOTREXATE SODIUM. [Concomitant]
     Active Substance: METHOTREXATE SODIUM
     Dosage: 15 MG, WEEKLY
     Dates: start: 20140715
  22. STELARA [Concomitant]
     Active Substance: USTEKINUMAB
     Indication: PSORIATIC ARTHROPATHY
     Dosage: 45 MG, UNK
     Route: 058
     Dates: start: 20140403
  23. CONTROLOC [Concomitant]
     Active Substance: PANTOPRAZOLE SODIUM
     Dosage: UNK
     Dates: start: 20140403
  24. FOLIC ACID. [Concomitant]
     Active Substance: FOLIC ACID
     Dosage: UNK
  25. ENBREL [Suspect]
     Active Substance: ETANERCEPT
     Dosage: UNK
     Route: 065
     Dates: start: 200811, end: 201202
  26. METHOTREXATE SODIUM. [Concomitant]
     Active Substance: METHOTREXATE SODIUM
     Dosage: 12.5 MG, WEEKLY
     Dates: start: 20130802
  27. ENBREL [Suspect]
     Active Substance: ETANERCEPT
     Dosage: UNK
     Route: 065
     Dates: start: 201601
  28. HUMIRA [Suspect]
     Active Substance: ADALIMUMAB
     Indication: PSORIATIC ARTHROPATHY
     Dosage: UNK
     Route: 065
     Dates: start: 201205, end: 201301
  29. NEOTIGASON [Suspect]
     Active Substance: ACITRETIN
     Dosage: 20 MG, ON 2ND DAY
     Route: 065
     Dates: start: 20140715, end: 20140717
  30. ALVODRONIC [Concomitant]
     Indication: PSORIATIC ARTHROPATHY
     Dosage: UNK
     Dates: start: 201509
  31. ENBREL [Suspect]
     Active Substance: ETANERCEPT
     Indication: PSORIATIC ARTHROPATHY
     Dosage: UNK
     Route: 065
     Dates: start: 200705, end: 200806
  32. PRONISON [Concomitant]
     Active Substance: PREDNISONE
     Indication: PSORIATIC ARTHROPATHY
     Dosage: 20 MG, DAILY; GRADUAL DOSE REDUCTION UNTIL DISCONTINUATION AFTER TWO MONTHS
     Dates: start: 2005, end: 2005
  33. NYSTATIN. [Concomitant]
     Active Substance: NYSTATIN
     Dosage: UNK, 2X/DAY
     Dates: start: 20140403

REACTIONS (7)
  - Alopecia [Unknown]
  - Anaemia [Unknown]
  - Drug ineffective [Unknown]
  - Mastitis [Unknown]
  - Urinary tract infection [Unknown]
  - Psoriatic arthropathy [Unknown]
  - Pneumonia [Unknown]

NARRATIVE: CASE EVENT DATE: 20070505
